FAERS Safety Report 15008083 (Version 1)
Quarter: 2018Q2

REPORT INFORMATION
  Report Type: Report from Study
  Country: BR (occurrence: BR)
  Receive Date: 20180613
  Receipt Date: 20180613
  Transmission Date: 20180711
  Serious: Yes (Other)
  Sender: FDA-Public Use
  Company Number: PHHY2018BR020037

PATIENT
  Age: 78 Year
  Sex: Female
  Weight: 76 kg

DRUGS (1)
  1. ACLASTA [Suspect]
     Active Substance: ZOLEDRONIC ACID
     Indication: OSTEOPOROSIS
     Dosage: 1 DF (5 MG/ 100 ML), UNK
     Route: 042

REACTIONS (5)
  - Spinal pain [Unknown]
  - Arthralgia [Unknown]
  - Neuropathy peripheral [Unknown]
  - Burning sensation [Unknown]
  - Hypoaesthesia [Unknown]

NARRATIVE: CASE EVENT DATE: 201801
